FAERS Safety Report 20868567 (Version 2)
Quarter: 2022Q2

REPORT INFORMATION
  Report Type: Report from Study
  Country: AR (occurrence: None)
  Receive Date: 20220524
  Receipt Date: 20220610
  Transmission Date: 20220721
  Serious: Yes (Other)
  Sender: FDA-Public Use
  Company Number: AR-ROCHE-3097343

PATIENT
  Age: 64 Year
  Sex: Male
  Weight: 86 kg

DRUGS (3)
  1. FARICIMAB [Suspect]
     Active Substance: FARICIMAB
     Indication: Retinal vein occlusion
     Dosage: ON 20/APR/2022, RECEIVED MOST RECENT DOSE OF STUDY DRUG PRIOR TO AE/SAE
     Route: 050
     Dates: start: 20211004
  2. FARICIMAB [Suspect]
     Active Substance: FARICIMAB
     Indication: Retinal vein occlusion
     Dosage: ON 20/APR/2022, RECEIVED MOST RECENT DOSE OF STUDY DRUG PRIOR TO AE/SAE
     Route: 050
     Dates: start: 20211004
  3. ALPERTAN D [Concomitant]
     Indication: Hypertension
     Route: 048
     Dates: start: 2011

REACTIONS (1)
  - Uveitis [Recovering/Resolving]

NARRATIVE: CASE EVENT DATE: 20220511
